FAERS Safety Report 18954521 (Version 1)
Quarter: 2021Q1

REPORT INFORMATION
  Report Type: Spontaneous
  Country: FI (occurrence: FI)
  Receive Date: 20210301
  Receipt Date: 20210301
  Transmission Date: 20210420
  Serious: Yes (Other)
  Sender: FDA-Public Use
  Company Number: FI-TAKEDA-2021TUS002182

PATIENT
  Sex: Male

DRUGS (5)
  1. DEXAMETHASON [DEXAMETHASONE] [Suspect]
     Active Substance: DEXAMETHASONE
     Indication: PROCEDURAL NAUSEA
     Dosage: UNK
     Route: 065
  2. EPHEDRINE. [Suspect]
     Active Substance: EPHEDRINE
     Indication: SYMPATHOMIMETIC EFFECT
     Dosage: UNK
     Route: 065
  3. ROCURONIUM [ROCURONIUM BROMIDE] [Suspect]
     Active Substance: ROCURONIUM BROMIDE
     Indication: MUSCLE RELAXANT THERAPY
     Dosage: UNK
     Route: 065
  4. LIDOCAINE. [Suspect]
     Active Substance: LIDOCAINE
     Indication: ANAESTHESIA
     Dosage: UNK
     Route: 065
  5. PROPOFOL. [Suspect]
     Active Substance: PROPOFOL
     Indication: ANAESTHESIA
     Dosage: UNK
     Route: 065

REACTIONS (1)
  - Bradycardia [Unknown]
